FAERS Safety Report 6119983-7 (Version None)
Quarter: 2009Q1

REPORT INFORMATION
  Report Type: 
  Country: None (occurrence: None)
  Receive Date: 20090316
  Receipt Date: 20090311
  Transmission Date: 20090719
  Serious: Yes (Death, Hospitalization)
  Sender: FDA-Public Use
  Company Number: JP-SANOFI-SYNTHELABO-F01200701691

PATIENT
  Sex: Male

DRUGS (9)
  1. DEXART [Concomitant]
     Dosage: UNK
     Route: 065
     Dates: start: 20070725, end: 20070725
  2. KYTRIL [Concomitant]
     Dosage: UNK
     Route: 065
     Dates: start: 20070725, end: 20070725
  3. ISOVORIN [Concomitant]
     Dosage: UNK
     Route: 065
     Dates: start: 20070725, end: 20070912
  4. CALCICOL [Concomitant]
     Dosage: UNK
     Route: 065
     Dates: start: 20070725, end: 20070725
  5. MAGNESIUM SULFATE [Concomitant]
     Dates: start: 20070725, end: 20070725
  6. ETODOLAC [Suspect]
     Dosage: UNK
     Route: 048
  7. FLUOROURACIL [Suspect]
     Route: 042
     Dates: start: 20071128, end: 20071128
  8. BEVACIZUMAB [Suspect]
     Route: 042
     Dates: start: 20070808, end: 20070808
  9. ELPLAT [Suspect]
     Indication: RECTAL CANCER RECURRENT
     Route: 042
     Dates: start: 20071128, end: 20071128

REACTIONS (3)
  - DISEASE PROGRESSION [None]
  - ILEAL PERFORATION [None]
  - VENOUS THROMBOSIS [None]
